FAERS Safety Report 5987487-8 (Version None)
Quarter: 2008Q4

REPORT INFORMATION
  Report Type: 
  Country: None (occurrence: None)
  Receive Date: 20081203
  Receipt Date: 20081117
  Transmission Date: 20090506
  Serious: Yes (Death, Hospitalization)
  Sender: FDA-Public Use
  Company Number: 0293

PATIENT
  Age: 26 Year
  Sex: Female

DRUGS (2)
  1. METHYLDOPA [Suspect]
     Indication: HYPERTENSION
     Dosage: 750 MG, PO
     Route: 048
  2. NIFEDIPINE [Concomitant]
     Indication: HYPERTENSION
     Dosage: 15 MG, PO
     Route: 048

REACTIONS (6)
  - DRUG EXPOSURE DURING PREGNANCY [None]
  - DRUG INEFFECTIVE [None]
  - HEART RATE INCREASED [None]
  - HYDROPS FOETALIS [None]
  - HYPERTENSIVE CRISIS [None]
  - PHAEOCHROMOCYTOMA [None]
